FAERS Safety Report 8356814-9 (Version None)
Quarter: 2012Q1

REPORT INFORMATION
  Report Type: 
  Country: None (occurrence: None)
  Receive Date: 20120315
  Receipt Date: 20110107
  Transmission Date: 20120608
  Serious: Yes (Other)
  Sender: FDA-Public Use
  Company Number: PHHY2010US82718

PATIENT
  Age: 45 Year
  Sex: Male

DRUGS (3)
  1. PAXIL [Suspect]
     Dosage: 40 MG, QD
     Dates: start: 20101119, end: 20110107
  2. GILENYA [Suspect]
     Indication: MULTIPLE SCLEROSIS
     Dosage: 0.5 MG, QD, ORAL
     Route: 048
     Dates: start: 20101119, end: 20110107
  3. LISINOPRIL [Suspect]
     Dosage: 10 MG, BID

REACTIONS (5)
  - HYPERHIDROSIS [None]
  - DEPRESSION [None]
  - BLOOD PRESSURE INCREASED [None]
  - CHILLS [None]
  - TREMOR [None]
